FAERS Safety Report 5890085-8 (Version None)
Quarter: 2008Q3

REPORT INFORMATION
  Report Type: 
  Country: None (occurrence: None)
  Receive Date: 20080919
  Receipt Date: 20080911
  Transmission Date: 20090109
  Serious: Yes (Hospitalization, Other)
  Sender: FDA-Public Use
  Company Number: US-B.I. PHARMACEUTICALS,INC./RIDGEFIELD-2008-BP-14071BP

PATIENT
  Age: 79 Year
  Sex: Male

DRUGS (4)
  1. FLOMAX [Suspect]
     Indication: BENIGN PROSTATIC HYPERPLASIA
     Dosage: .4MG
     Route: 048
     Dates: start: 20080201
  2. ATENOLOL [Concomitant]
  3. WARFARIN SODIUM [Concomitant]
  4. BETHANECHOL [Concomitant]

REACTIONS (3)
  - MICTURITION URGENCY [None]
  - PROSTATE CANCER [None]
  - THERAPEUTIC RESPONSE DECREASED [None]
